FAERS Safety Report 4932490-X (Version None)
Quarter: 2006Q1

REPORT INFORMATION
  Report Type: 
  Country: None (occurrence: None)
  Receive Date: 20060228
  Receipt Date: 20060206
  Transmission Date: 20060701
  Serious: Yes (Other)
  Sender: FDA-Public Use
  Company Number: US200602001243

PATIENT
  Age: 73 Year
  Sex: Male

DRUGS (4)
  1. HUMALOG [Suspect]
     Dosage: 12 U, OTHER
  2. HUMALOG PEN [Suspect]
     Dosage: 12 U
     Dates: start: 20051101
  3. HUMULIN R [Suspect]
  4. HUMULIN 70/30 [Suspect]

REACTIONS (15)
  - ABNORMAL BEHAVIOUR [None]
  - BLOOD GLUCOSE DECREASED [None]
  - BLOOD GLUCOSE INCREASED [None]
  - CARDIAC DISORDER [None]
  - CATARACT [None]
  - CORONARY ARTERY DISEASE [None]
  - DEVICE MALFUNCTION [None]
  - HEART RATE INCREASED [None]
  - HYPERTENSION [None]
  - OBSTRUCTION [None]
  - PALPITATIONS [None]
  - PHARMACEUTICAL PRODUCT COMPLAINT [None]
  - STENT PLACEMENT [None]
  - THINKING ABNORMAL [None]
  - VISUAL DISTURBANCE [None]
